FAERS Safety Report 16664431 (Version 1)
Quarter: 2019Q3

REPORT INFORMATION
  Report Type: Spontaneous
  Country: IE (occurrence: IE)
  Receive Date: 20190802
  Receipt Date: 20190802
  Transmission Date: 20191004
  Serious: Yes (Other)
  Sender: FDA-Public Use
  Company Number: IE-ALLERGAN-1931011US

PATIENT
  Sex: Female

DRUGS (1)
  1. ESCITALOPRAM OXALATE - BP [Suspect]
     Active Substance: ESCITALOPRAM OXALATE
     Indication: DEPRESSED MOOD
     Dosage: 15 MILLIGRAM DAILY
     Route: 048
     Dates: start: 20190423

REACTIONS (4)
  - Bruxism [Recovered/Resolved]
  - Abdominal discomfort [Recovered/Resolved]
  - Adverse drug reaction [Unknown]
  - Restless legs syndrome [Recovered/Resolved]

NARRATIVE: CASE EVENT DATE: 20190525
